FAERS Safety Report 11987970 (Version 1)
Quarter: 2016Q1

REPORT INFORMATION
  Report Type: Spontaneous
  Country: US (occurrence: None)
  Receive Date: 20160201
  Receipt Date: 20160201
  Transmission Date: 20160526
  Serious: Yes (Life-Threatening, Other)
  Sender: FDA-Public Use
  Company Number: None

PATIENT
  Age: 51 Year
  Sex: Female
  Weight: 63.5 kg

DRUGS (3)
  1. LOVASTATIN. [Concomitant]
     Active Substance: LOVASTATIN
  2. HUMIRA [Suspect]
     Active Substance: ADALIMUMAB
     Indication: PSORIASIS
     Dosage: 2 LOADING DOSES, SHOT IN 2 WKS. GIVEN INTO/UNDER THE SKIN
     Dates: start: 20150212, end: 20150305
  3. IRBESARTAN. [Concomitant]
     Active Substance: IRBESARTAN

REACTIONS (7)
  - Vaginal haemorrhage [None]
  - No therapeutic response [None]
  - Pain in extremity [None]
  - Rash [None]
  - Heart rate increased [None]
  - Pruritus [None]
  - Blood pressure increased [None]

NARRATIVE: CASE EVENT DATE: 20150217
